FAERS Safety Report 18691241 (Version 1)
Quarter: 2021Q1

REPORT INFORMATION
  Report Type: Spontaneous
  Country: US (occurrence: US)
  Receive Date: 20210101
  Receipt Date: 20210101
  Transmission Date: 20210419
  Serious: No
  Sender: FDA-Public Use
  Company Number: US-SA-2020SA377431

PATIENT

DRUGS (6)
  1. FLUOXETINE HCL [Concomitant]
     Active Substance: FLUOXETINE HYDROCHLORIDE
  2. AUBAGIO [Suspect]
     Active Substance: TERIFLUNOMIDE
     Indication: MULTIPLE SCLEROSIS
     Dosage: 14 MG, QD
     Route: 048
     Dates: start: 2017
  3. MELOXICAM. [Concomitant]
     Active Substance: MELOXICAM
  4. TRAZODONE HYDROCHLORIDE. [Concomitant]
     Active Substance: TRAZODONE HYDROCHLORIDE
  5. TOPIRAMATE. [Concomitant]
     Active Substance: TOPIRAMATE
  6. ZINC. [Concomitant]
     Active Substance: ZINC

REACTIONS (3)
  - Depressed mood [Unknown]
  - Post procedural infection [Unknown]
  - Tenoplasty [Unknown]

NARRATIVE: CASE EVENT DATE: 2020
